FAERS Safety Report 12627647 (Version 1)
Quarter: 2016Q3

REPORT INFORMATION
  Report Type: Spontaneous
  Country: US (occurrence: US)
  Receive Date: 20160805
  Receipt Date: 20160805
  Transmission Date: 20161109
  Serious: No
  Sender: FDA-Public Use
  Company Number: US-ASTRAZENECA-2016SE81694

PATIENT
  Age: 30663 Day
  Sex: Female
  Weight: 85.7 kg

DRUGS (1)
  1. PULMICORT FLEXHALER [Suspect]
     Active Substance: BUDESONIDE
     Indication: OXYGEN CONSUMPTION DECREASED
     Dosage: 180 MG, 1 PUFF TWICE A DAY
     Route: 055
     Dates: start: 20160716

REACTIONS (5)
  - Off label use [Unknown]
  - Fatigue [Unknown]
  - Somnolence [Unknown]
  - Depression [Unknown]
  - Product use issue [Unknown]

NARRATIVE: CASE EVENT DATE: 20160716
